FAERS Safety Report 7712354-9 (Version None)
Quarter: 2011Q3

REPORT INFORMATION
  Report Type: 
  Country: None (occurrence: None)
  Receive Date: 20110826
  Receipt Date: 20110819
  Transmission Date: 20111222
  Serious: Yes (Hospitalization, Other)
  Sender: FDA-Public Use
  Company Number: US-JNJFOC-20110703742

PATIENT
  Sex: Female
  Weight: 23.4 kg

DRUGS (10)
  1. REMICADE [Suspect]
     Indication: INFLAMMATORY BOWEL DISEASE
     Route: 042
     Dates: start: 20110309
  2. OMEPRAZOLE [Concomitant]
  3. CONCERTA [Concomitant]
  4. REMICADE [Suspect]
     Route: 042
     Dates: start: 20110427
  5. MESALAMINE [Concomitant]
  6. BUDESONIDE [Concomitant]
  7. MIRALAX [Concomitant]
  8. ALBUTEROL SULFATE AUTOHALER [Concomitant]
  9. CLONIDINE [Concomitant]
  10. PULMICORT [Concomitant]

REACTIONS (1)
  - SYDENHAM'S CHOREA [None]
